FAERS Safety Report 7079135-3 (Version None)
Quarter: 2010Q4

REPORT INFORMATION
  Report Type: 
  Country: None (occurrence: None)
  Receive Date: 20101102
  Receipt Date: 20101101
  Transmission Date: 20110411
  Serious: Yes (Other)
  Sender: FDA-Public Use
  Company Number: A0878436A

PATIENT
  Age: 53 Year
  Sex: Female
  Weight: 62.7 kg

DRUGS (5)
  1. VOTRIENT [Suspect]
     Indication: RENAL CANCER
     Dosage: 600MG PER DAY
     Route: 048
     Dates: start: 20100625
  2. ZOLPIDEM [Concomitant]
  3. CITALOPRAM HYDROBROMIDE [Concomitant]
  4. OMEPRAZOLE [Concomitant]
  5. AMLODIPINE BESYLATE [Concomitant]

REACTIONS (1)
  - PLEURAL EFFUSION [None]
